FAERS Safety Report 22223375 (Version 1)
Quarter: 2023Q2

REPORT INFORMATION
  Report Type: Spontaneous
  Country: US (occurrence: None)
  Receive Date: 20230416
  Receipt Date: 20230416
  Transmission Date: 20230721
  Serious: No
  Sender: FDA-Public Use
  Company Number: None

PATIENT
  Sex: Female
  Weight: 70.31 kg

DRUGS (5)
  1. LAPATINIB DITOSYLATE [Suspect]
     Active Substance: LAPATINIB DITOSYLATE
     Indication: Metastases to lung
     Dosage: FREQUENCY : DAILY;?
     Route: 048
  2. AMLODIPINE [Concomitant]
  3. FLUOXETINE [Concomitant]
  4. LETROZOLE [Concomitant]
  5. LISINOPRIL [Concomitant]

REACTIONS (4)
  - Abdominal discomfort [None]
  - Rash [None]
  - Therapy cessation [None]
  - Drug intolerance [None]
